FAERS Safety Report 17495024 (Version 2)
Quarter: 2021Q1

REPORT INFORMATION
  Report Type: Spontaneous
  Country: US (occurrence: US)
  Receive Date: 20200303
  Receipt Date: 20210303
  Transmission Date: 20210419
  Serious: No
  Sender: FDA-Public Use
  Company Number: US-AMNEAL PHARMACEUTICALS-2019-AMRX-03462

PATIENT
  Sex: Female

DRUGS (7)
  1. CARBIDOPA?LEVODOPA ER [Suspect]
     Active Substance: CARBIDOPA\LEVODOPA
     Indication: PARKINSON^S DISEASE
     Dosage: 0.5 CAPSULES, BID (5:30AM?9:30AM)
     Route: 065
     Dates: start: 20191226
  2. RYTARY [Suspect]
     Active Substance: CARBIDOPA\LEVODOPA
     Indication: PARKINSON^S DISEASE
     Dosage: 48.75/195MG, 3 CAPSULES, TID (6AM?11AM?4PM)
     Route: 065
     Dates: start: 20191127
  3. RYTARY [Suspect]
     Active Substance: CARBIDOPA\LEVODOPA
     Dosage: 2 CAPSULES, 2 /DAY (3RD AND 4RTH DOSE)
     Route: 065
     Dates: start: 20191226, end: 20200108
  4. RYTARY [Suspect]
     Active Substance: CARBIDOPA\LEVODOPA
     Dosage: 48.75/195MG, 2 CAPSULES, QID
     Route: 065
     Dates: start: 20191216
  5. CARBIDOPA?LEVODOPA ER [Suspect]
     Active Substance: CARBIDOPA\LEVODOPA
     Dosage: UNK
     Route: 065
  6. RYTARY [Suspect]
     Active Substance: CARBIDOPA\LEVODOPA
     Dosage: 48.75/195MG, 2 CAPSULES, TID
     Route: 065
     Dates: start: 20191206
  7. CARBIDOPA?LEVODOPA ER [Suspect]
     Active Substance: CARBIDOPA\LEVODOPA
     Dosage: 0.5 CAPSULES, 1 /DAY (5:30AM)
     Route: 065
     Dates: start: 20191229

REACTIONS (11)
  - Therapeutic response shortened [Unknown]
  - Mania [Unknown]
  - Chills [Unknown]
  - Vision blurred [Unknown]
  - Dyskinesia [Unknown]
  - Musculoskeletal stiffness [Unknown]
  - Tremor [Unknown]
  - Asthenia [Unknown]
  - Insomnia [Unknown]
  - Drug ineffective [Unknown]
  - Nausea [Unknown]

NARRATIVE: CASE EVENT DATE: 2019
